FAERS Safety Report 8092306-2 (Version None)
Quarter: 2011Q4

REPORT INFORMATION
  Report Type: 
  Country: None (occurrence: None)
  Receive Date: 20111222
  Receipt Date: 20110921
  Transmission Date: 20120403
  Serious: Yes (Hospitalization)
  Sender: FDA-Public Use
  Company Number: UTC-010555

PATIENT
  Age: 66 Year
  Sex: Female
  Weight: 87.72 kg

DRUGS (4)
  1. DIURETICS (DIURETICS) [Concomitant]
  2. TYVASO [Suspect]
     Indication: COR PULMONALE CHRONIC
     Dosage: 54-72 36 MICROGRAMS, INHALATION
     Route: 055
     Dates: start: 20100512
  3. OXYGEN (OXYGEN) [Concomitant]
  4. ASPIRIN [Concomitant]

REACTIONS (1)
  - SYNCOPE [None]
